FAERS Safety Report 18356671 (Version 1)
Quarter: 2020Q4

REPORT INFORMATION
  Report Type: Spontaneous
  Country: US (occurrence: US)
  Receive Date: 20201007
  Receipt Date: 20201007
  Transmission Date: 20210114
  Serious: No
  Sender: FDA-Public Use
  Company Number: US-SPROUT PHARMACEUTICALS, INC.-2020SP000022

PATIENT
  Sex: Female
  Weight: 61.29 kg

DRUGS (2)
  1. ADDYI [Suspect]
     Active Substance: FLIBANSERIN
     Indication: LIBIDO DECREASED
     Dosage: WITH THE EXCEPTION THAT NO DOSES WERE TAKEN ON SATURDAYS AND SUNDAYS
     Route: 048
     Dates: start: 202001
  2. COMPOUNDED HORMONES [Concomitant]
     Indication: MENOPAUSAL SYMPTOMS
     Dates: start: 2015

REACTIONS (8)
  - Stress [Not Recovered/Not Resolved]
  - Emotional disorder [Not Recovered/Not Resolved]
  - Dizziness [Not Recovered/Not Resolved]
  - Product use in unapproved indication [Not Recovered/Not Resolved]
  - Anger [Not Recovered/Not Resolved]
  - Drug ineffective for unapproved indication [Not Recovered/Not Resolved]
  - Depression [Not Recovered/Not Resolved]
  - Intentional dose omission [Not Recovered/Not Resolved]
